FAERS Safety Report 5366825-3 (Version None)
Quarter: 2007Q2

REPORT INFORMATION
  Report Type: 
  Country: None (occurrence: None)
  Receive Date: 20070622
  Receipt Date: 20070321
  Transmission Date: 20071010
  Serious: No
  Sender: FDA-Public Use
  Company Number: A0644119A

PATIENT
  Age: 61 Year
  Sex: Male

DRUGS (5)
  1. ZYBAN [Suspect]
     Dosage: 150MG TWICE PER DAY
     Route: 048
     Dates: start: 20070310
  2. TOPROL-XL [Concomitant]
  3. LIPITOR [Concomitant]
  4. ASPIRIN [Concomitant]
  5. VIT E [Concomitant]

REACTIONS (1)
  - DRUG INEFFECTIVE [None]
